FAERS Safety Report 12068752 (Version 1)
Quarter: 2016Q1

REPORT INFORMATION
  Report Type: Report from Study
  Country: ES (occurrence: ES)
  Receive Date: 20160211
  Receipt Date: 20160211
  Transmission Date: 20160526
  Serious: Yes (Other)
  Sender: FDA-Public Use
  Company Number: ES-BRISTOL-MYERS SQUIBB COMPANY-19140847

PATIENT
  Age: 33 Year
  Sex: Male
  Weight: 71 kg

DRUGS (3)
  1. ARIPIPRAZOLE. [Suspect]
     Active Substance: ARIPIPRAZOLE
     Indication: PSYCHOTIC DISORDER
     Dosage: 3 MG, UNK
     Route: 048
     Dates: start: 20120209
  2. ARIPIPRAZOLE. [Suspect]
     Active Substance: ARIPIPRAZOLE
     Indication: ANXIETY
  3. ALPRAZOLAM. [Concomitant]
     Active Substance: ALPRAZOLAM
     Indication: ANXIETY
     Dosage: LAST DOSE ADMINISTERED :06-MAR-2012
     Route: 048
     Dates: start: 20120209

REACTIONS (2)
  - Off label use [Unknown]
  - Abnormal weight gain [Not Recovered/Not Resolved]

NARRATIVE: CASE EVENT DATE: 201202
